FAERS Safety Report 9550898 (Version 2)
Quarter: 2014Q2

REPORT INFORMATION
  Report Type: Spontaneous
  Country: US (occurrence: US)
  Receive Date: 20130924
  Receipt Date: 20140402
  Transmission Date: 20141212
  Serious: No
  Sender: FDA-Public Use
  Company Number: US-SANOFI-AVENTIS-2013SA041258

PATIENT
  Age: 34 Year
  Sex: Female

DRUGS (1)
  1. AUBAGIO [Suspect]
     Indication: MULTIPLE SCLEROSIS
     Dosage: START DATE: LATE NOV OR DEC2012
     Route: 048

REACTIONS (8)
  - Dandruff [Not Recovered/Not Resolved]
  - Skin lesion [Unknown]
  - Visual impairment [Not Recovered/Not Resolved]
  - Fatigue [Unknown]
  - Speech disorder [Unknown]
  - Blood potassium decreased [Unknown]
  - Alopecia [Recovered/Resolved]
  - Headache [Unknown]
